FAERS Safety Report 6625542-X (Version None)
Quarter: 2010Q1

REPORT INFORMATION
  Report Type: 
  Country: None (occurrence: None)
  Receive Date: 20100305
  Receipt Date: 20100225
  Transmission Date: 20100710
  Serious: Yes (Hospitalization)
  Sender: FDA-Public Use
  Company Number: 2010SP010507

PATIENT
  Sex: Female

DRUGS (2)
  1. TEMODAR [Suspect]
     Indication: BREAST CANCER METASTATIC
     Dates: start: 20091021
  2. IRINOTECAN HCL [Suspect]
     Indication: BREAST CANCER METASTATIC
     Dates: start: 20091021

REACTIONS (8)
  - ABASIA [None]
  - ALTERED STATE OF CONSCIOUSNESS [None]
  - ANAEMIA [None]
  - BRAIN OEDEMA [None]
  - CONFUSIONAL STATE [None]
  - LUNG INFILTRATION [None]
  - PAIN [None]
  - SPEECH DISORDER [None]
